FAERS Safety Report 7036870 (Version 1)
Quarter: 2020Q3

REPORT INFORMATION
  Report Type: Report from Study
  Country: BR (occurrence: BR)
  Receive Date: 20090630
  Receipt Date: 20090630
  Transmission Date: 20201105
  Serious: Yes (Hospitalization)
  Sender: FDA-Public Use
  Company Number: BR-ROCHE-640217

PATIENT
  Age: 86 Year
  Sex: Female
  Weight: 72 kg

DRUGS (13)
  1. CILOSTAZOL. [Concomitant]
     Active Substance: CILOSTAZOL
     Route: 048
  2. IBANDRONIC ACID. [Suspect]
     Active Substance: IBANDRONIC ACID
     Dosage: START DATE REPORTED AS 2004?2005
     Route: 048
     Dates: start: 2004
  3. PLAVIX [Concomitant]
     Active Substance: CLOPIDOGREL BISULFATE
  4. RENITEC [ENALAPRILAT] [Concomitant]
     Active Substance: ENALAPRILAT
  5. OMEPRAZOLE. [Concomitant]
     Active Substance: OMEPRAZOLE
  6. ASPIRIN\DIHYDROXYALUMINUM AMINOACETATE\MAGNESIUM CARBONATE [Concomitant]
     Active Substance: ASPIRIN\DIHYDROXYALUMINUM AMINOACETATE\MAGNESIUM CARBONATE
  7. INSULIN NOS [Concomitant]
     Active Substance: INSULIN NOS
  8. NORIPURUM [Concomitant]
     Active Substance: IRON POLYMALTOSE
     Dosage: DRUG REPORTED AS: NORIPURUM FOLICO/ FOLIC ACID
     Route: 048
  9. SIMVASTATIN. [Concomitant]
     Active Substance: SIMVASTATIN
  10. NIMODIPINE. [Concomitant]
     Active Substance: NIMODIPINE
     Route: 048
  11. .ALPHA.?TOCOPHEROL\ASCORBIC ACID\COPPER\LUTEIN\ZINC [Concomitant]
     Active Substance: .ALPHA.-TOCOPHEROL\ASCORBIC ACID\COPPER\LUTEIN\ZINC
     Indication: EYE DISORDER
     Route: 048
  12. ATENOLOL. [Concomitant]
     Active Substance: ATENOLOL
  13. LASIX [Concomitant]
     Active Substance: FUROSEMIDE

REACTIONS (1)
  - Arrhythmia [Not Recovered/Not Resolved]

NARRATIVE: CASE EVENT DATE: 20090622
